FAERS Safety Report 4773534-8 (Version None)
Quarter: 2005Q3

REPORT INFORMATION
  Report Type: 
  Country: None (occurrence: None)
  Receive Date: 20050920
  Receipt Date: 20040902
  Transmission Date: 20060218
  Serious: No
  Sender: FDA-Public Use
  Company Number: US-BRISTOL-MYERS SQUIBB COMPANY-12691382

PATIENT
  Age: 32 Year
  Sex: Female
  Weight: 70 kg

DRUGS (4)
  1. BUSPAR [Suspect]
     Indication: ANXIETY
     Dosage: APPROXIMATLEY 1 1/2 YEARS DURATION
     Route: 048
  2. ZOLOFT [Concomitant]
  3. TRILEPTAL [Concomitant]
  4. INDERAL [Concomitant]

REACTIONS (1)
  - PREGNANCY [None]
